FAERS Safety Report 5304888-1 (Version None)
Quarter: 2007Q2

REPORT INFORMATION
  Report Type: 
  Country: None (occurrence: None)
  Receive Date: 20070423
  Receipt Date: 20070411
  Transmission Date: 20071010
  Serious: Yes (Other)
  Sender: FDA-Public Use
  Company Number: BR-PFIZER INC-2007030024

PATIENT
  Sex: Male

DRUGS (5)
  1. ATORVASTATIN CALCIUM [Suspect]
     Indication: DYSLIPIDAEMIA
     Route: 048
  2. CALCIUM CARBONATE [Concomitant]
     Dosage: DAILY DOSE:500MG
     Route: 048
  3. VITAMIN D3 [Concomitant]
     Route: 048
  4. ALENDRONATE SODIUM [Concomitant]
     Route: 048
  5. BROMAZEPAM [Concomitant]

REACTIONS (3)
  - INFECTION [None]
  - NECROSIS [None]
  - SKIN LACERATION [None]
